FAERS Safety Report 8297157-1 (Version None)
Quarter: 2012Q2

REPORT INFORMATION
  Report Type: 
  Country: None (occurrence: None)
  Receive Date: 20120419
  Receipt Date: 20120416
  Transmission Date: 20120825
  Serious: No
  Sender: FDA-Public Use
  Company Number: US-PFIZER INC-2012094019

PATIENT
  Sex: Female

DRUGS (1)
  1. SUTENT [Suspect]
     Indication: THYROID CANCER
     Dosage: 50 (UNITS UNSPECIFIED), 1X/DAY
     Dates: start: 20120409

REACTIONS (1)
  - FATIGUE [None]
